FAERS Safety Report 7629682-8 (Version None)
Quarter: 2011Q3

REPORT INFORMATION
  Report Type: 
  Country: None (occurrence: None)
  Receive Date: 20110722
  Receipt Date: 20110715
  Transmission Date: 20111222
  Serious: Yes (Other)
  Sender: FDA-Public Use
  Company Number: US-JNJFOC-20110707381

PATIENT

DRUGS (3)
  1. HALDOL [Suspect]
     Indication: MENTAL DISORDER
     Route: 065
  2. COGENTIN [Suspect]
     Indication: MENTAL DISORDER
     Route: 065
  3. BENADRYL [Suspect]
     Indication: MENTAL DISORDER
     Route: 065

REACTIONS (1)
  - JUDGEMENT IMPAIRED [None]
